FAERS Safety Report 20609949 (Version 1)
Quarter: 2022Q1

REPORT INFORMATION
  Report Type: Spontaneous
  Country: US (occurrence: US)
  Receive Date: 20220318
  Receipt Date: 20220318
  Transmission Date: 20220423
  Serious: Yes (Hospitalization, Other)
  Sender: FDA-Public Use
  Company Number: US-MLMSERVICE-20220308-3417924-1

PATIENT
  Age: 47 Year
  Sex: Female

DRUGS (2)
  1. PREDNISONE [Suspect]
     Active Substance: PREDNISONE
     Indication: Lupus nephritis
     Route: 065
     Dates: start: 200807, end: 200811
  2. MYCOPHENOLATE MOFETIL [Suspect]
     Active Substance: MYCOPHENOLATE MOFETIL
     Indication: Lupus nephritis
     Route: 065
     Dates: start: 200807, end: 200811

REACTIONS (2)
  - Nocardiosis [Recovered/Resolved]
  - Brain abscess [Recovered/Resolved]

NARRATIVE: CASE EVENT DATE: 20080801
